FAERS Safety Report 9547722 (Version 1)
Quarter: 2013Q3

REPORT INFORMATION
  Report Type: Spontaneous
  Country: FR (occurrence: None)
  Receive Date: 20130920
  Receipt Date: 20130920
  Transmission Date: 20140515
  Serious: Yes (Hospitalization, Other)
  Sender: FDA-Public Use
  Company Number: AXC-2013-000470

PATIENT
  Age: 78 Year
  Sex: Male

DRUGS (8)
  1. PYLERA [Suspect]
     Indication: PRODUCT USED FOR UNKNOWN INDICATION
     Route: 048
     Dates: start: 20130601, end: 20130606
  2. FORTZAAR (HYDROCHLOROTHIAZIDE, LOSARTAN POTASSIUM) [Concomitant]
  3. LOXEN (NICARDIPINE HYDROCHLORIDE) SLOW RELEASE [Concomitant]
  4. METFORMIN (METFORMIN) [Concomitant]
  5. ALLOPURINOL [Concomitant]
  6. PERMIXON (SERENOA REPENS EXTRACT) [Concomitant]
  7. OMEPRAZOLE (OMEPRAZOLE) [Concomitant]
  8. DOLIPRANE (PARACETAMOL) [Concomitant]

REACTIONS (5)
  - Hepatitis [None]
  - Abdominal pain upper [None]
  - Hepatocellular injury [None]
  - Cholestasis [None]
  - Atrial fibrillation [None]
